FAERS Safety Report 5813450-3 (Version None)
Quarter: 2008Q3

REPORT INFORMATION
  Report Type: 
  Country: None (occurrence: None)
  Receive Date: 20080717
  Receipt Date: 20080714
  Transmission Date: 20090109
  Serious: Yes (Hospitalization, Other)
  Sender: FDA-Public Use
  Company Number: CA-AMGEN-QUU293071

PATIENT
  Sex: Male

DRUGS (5)
  1. ENBREL [Suspect]
     Indication: RHEUMATOID ARTHRITIS
     Route: 030
     Dates: start: 20030320, end: 20080601
  2. ATENOLOL [Concomitant]
     Dates: start: 20061201
  3. PREVACID [Concomitant]
     Dates: start: 20070601
  4. OXYCONTIN [Concomitant]
     Dates: start: 20060801
  5. LOMOTIL [Concomitant]
     Dates: start: 20010901

REACTIONS (3)
  - BACTERIURIA [None]
  - RENAL FAILURE [None]
  - SALMONELLOSIS [None]
